FAERS Safety Report 17505672 (Version 2)
Quarter: 2021Q3

REPORT INFORMATION
  Report Type: Spontaneous
  Country: FR (occurrence: FR)
  Receive Date: 20200306
  Receipt Date: 20210816
  Transmission Date: 20211014
  Serious: Yes (Other)
  Sender: FDA-Public Use
  Company Number: FR-US-PROVELL PHARMACEUTICALS LLC-E2B_90075447

PATIENT
  Age: 70 Year
  Sex: Female

DRUGS (7)
  1. NEOFORDEX [Concomitant]
     Active Substance: DEXAMETHASONE ACETATE
     Indication: PRODUCT USED FOR UNKNOWN INDICATION
  2. DARZALEX [Concomitant]
     Active Substance: DARATUMUMAB
     Indication: PRODUCT USED FOR UNKNOWN INDICATION
  3. MAG 2                              /01486821/ [Concomitant]
     Active Substance: MAGNESIUM PIDOLATE
     Indication: PRODUCT USED FOR UNKNOWN INDICATION
     Dosage: VERY RARELY
  4. LEVOTHYROX [Suspect]
     Active Substance: LEVOTHYROXINE
     Dosage: DOSE DECREASED
  5. LEVOTHYROX [Suspect]
     Active Substance: LEVOTHYROXINE
     Indication: POST PROCEDURAL HYPOTHYROIDISM
     Dosage: 100 UG PER DAY AND 112.5 UG PER DAY (OLD FORMULATION)
     Dates: start: 1999
  6. VALACYCLOVIR [Concomitant]
     Active Substance: VALACYCLOVIR HYDROCHLORIDE
     Indication: PRODUCT USED FOR UNKNOWN INDICATION
  7. VELCADE [Suspect]
     Active Substance: BORTEZOMIB
     Indication: PLASMA CELL MYELOMA
     Dosage: 4 FRIDAYS OUT OF 5
     Route: 058
     Dates: start: 201908

REACTIONS (9)
  - Feeling abnormal [Unknown]
  - Hyporeflexia [Unknown]
  - Blood thyroid stimulating hormone decreased [Unknown]
  - Plasma cell myeloma [Unknown]
  - Sleep disorder [Unknown]
  - Dehydration [Unknown]
  - Erythema [Unknown]
  - Diarrhoea [Unknown]
  - Breast swelling [Unknown]

NARRATIVE: CASE EVENT DATE: 201908
